FAERS Safety Report 10663356 (Version 1)
Quarter: 2014Q4

REPORT INFORMATION
  Report Type: Spontaneous
  Country: US (occurrence: US)
  Receive Date: 20141218
  Receipt Date: 20141218
  Transmission Date: 20150529
  Serious: No
  Sender: FDA-Public Use
  Company Number: US-GLAXOSMITHKLINE-US2014GSK018348

PATIENT
  Sex: Male

DRUGS (5)
  1. METFORMIN [Concomitant]
     Active Substance: METFORMIN HYDROCHLORIDE
  2. INSULIN [Concomitant]
     Active Substance: INSULIN NOS
  3. VENTOLIN [Concomitant]
     Active Substance: ALBUTEROL SULFATE
  4. PAIN KILLERS [Concomitant]
     Active Substance: UNSPECIFIED INGREDIENT
  5. ADVAIR DISKUS [Suspect]
     Active Substance: FLUTICASONE PROPIONATE\SALMETEROL XINAFOATE
     Indication: ASTHMA
     Route: 055

REACTIONS (3)
  - Drug administration error [Not Recovered/Not Resolved]
  - Feeling abnormal [Unknown]
  - Respiration abnormal [Not Recovered/Not Resolved]
